FAERS Safety Report 17526996 (Version 2)
Quarter: 2020Q1

REPORT INFORMATION
  Report Type: Spontaneous
  Country: US (occurrence: US)
  Receive Date: 20200311
  Receipt Date: 20200313
  Transmission Date: 20200409
  Serious: Yes (Other)
  Sender: FDA-Public Use
  Company Number: US-BAYER-2020-033717

PATIENT
  Age: 75 Year
  Sex: Male
  Weight: 90.72 kg

DRUGS (7)
  1. FERROUS SULFATE. [Concomitant]
     Active Substance: FERROUS SULFATE
     Dosage: 324 MG
     Dates: start: 20200124
  2. ALEVE [Suspect]
     Active Substance: NAPROXEN SODIUM
     Indication: ARTHRALGIA
     Dosage: 500 MG
     Dates: end: 20200201
  3. COLACE [Concomitant]
     Active Substance: DOCUSATE SODIUM
  4. XELJANZ [Suspect]
     Active Substance: TOFACITINIB CITRATE
     Dosage: 5 UNK
     Dates: start: 201911
  5. XELJANZ [Suspect]
     Active Substance: TOFACITINIB CITRATE
     Dosage: 10 MG, BID
     Route: 048
     Dates: start: 20190919, end: 201911
  6. FLUOXETINE [Suspect]
     Active Substance: FLUOXETINE HYDROCHLORIDE
     Dosage: 20 MG
     Route: 048
  7. PROZAC [Concomitant]
     Active Substance: FLUOXETINE HYDROCHLORIDE
     Dosage: UNK
     Dates: end: 20200204

REACTIONS (6)
  - Haematochezia [None]
  - Blood iron decreased [None]
  - Constipation [None]
  - Fatigue [None]
  - Adverse event [None]
  - Drug ineffective [None]

NARRATIVE: CASE EVENT DATE: 20200129
